FAERS Safety Report 5052758-9 (Version None)
Quarter: 2006Q3

REPORT INFORMATION
  Report Type: 
  Country: None (occurrence: None)
  Receive Date: 20060717
  Receipt Date: 20060303
  Transmission Date: 20061208
  Serious: Yes (Life-Threatening, Hospitalization)
  Sender: FDA-Public Use
  Company Number: IE-ROCHE-438894

PATIENT
  Age: 21 Year
  Sex: Male
  Weight: 79.9 kg

DRUGS (1)
  1. ACCUTANE [Suspect]
     Indication: ACNE
     Route: 048
     Dates: start: 20040815, end: 20050215

REACTIONS (9)
  - BUDD-CHIARI SYNDROME [None]
  - DRUG INEFFECTIVE [None]
  - HEPATIC VEIN THROMBOSIS [None]
  - NAUSEA [None]
  - PAROXYSMAL NOCTURNAL HAEMOGLOBINURIA [None]
  - PORTAL VEIN THROMBOSIS [None]
  - RENAL VEIN THROMBOSIS [None]
  - VENA CAVA THROMBOSIS [None]
  - VOMITING [None]
